FAERS Safety Report 7596842-4 (Version None)
Quarter: 2011Q3

REPORT INFORMATION
  Report Type: 
  Country: None (occurrence: None)
  Receive Date: 20110708
  Receipt Date: 20110624
  Transmission Date: 20111222
  Serious: Yes (Hospitalization)
  Sender: FDA-Public Use
  Company Number: US-SANOFI-AVENTIS-2011SA040073

PATIENT
  Age: 85 Year
  Sex: Male
  Weight: 83.91 kg

DRUGS (6)
  1. LUPRON [Concomitant]
     Dates: start: 20110518, end: 20110518
  2. NILANDRON [Suspect]
     Indication: PROSTATE CANCER
     Route: 048
     Dates: start: 20100915, end: 20110615
  3. ALL OTHER THERAPEUTIC PRODUCTS [Suspect]
     Route: 065
     Dates: start: 20100915
  4. HYPNOTICS AND SEDATIVES [Concomitant]
  5. LASIX [Concomitant]
  6. VITAMIN D [Concomitant]

REACTIONS (3)
  - MUSCLE ATROPHY [None]
  - RHABDOMYOLYSIS [None]
  - LABORATORY TEST ABNORMAL [None]
